FAERS Safety Report 8496243-0 (Version None)
Quarter: 2012Q3

REPORT INFORMATION
  Report Type: 
  Country: None (occurrence: None)
  Receive Date: 20120709
  Receipt Date: 20120625
  Transmission Date: 20120928
  Serious: Yes (Hospitalization, Other)
  Sender: FDA-Public Use
  Company Number: GB-MYLANLABS-2012S1013103

PATIENT
  Age: 68 Year
  Sex: Female

DRUGS (5)
  1. METHOTREXATE [Suspect]
     Indication: DIFFUSE LARGE B-CELL LYMPHOMA
     Dosage: 2.5 G/M2
     Route: 042
  2. PROCARBAZINE HYDROCHLORIDE [Concomitant]
     Indication: DIFFUSE LARGE B-CELL LYMPHOMA
     Dosage: 200 MG DAILY
     Route: 065
  3. OMEPRAZOLE [Concomitant]
     Route: 065
  4. ALLOPURINOL [Suspect]
     Route: 065
  5. DEXAMETHASONE [Concomitant]
     Route: 065

REACTIONS (2)
  - RECALL PHENOMENON [None]
  - STEVENS-JOHNSON SYNDROME [None]
